FAERS Safety Report 18795945 (Version 1)
Quarter: 2021Q1

REPORT INFORMATION
  Report Type: Spontaneous
  Country: US (occurrence: US)
  Receive Date: 20210127
  Receipt Date: 20210127
  Transmission Date: 20210419
  Serious: Yes (Other)
  Sender: FDA-Public Use
  Company Number: US-GLAXOSMITHKLINE-US2021GSK019256

PATIENT
  Sex: Female

DRUGS (4)
  1. RANITIDINE CAPSULE [Suspect]
     Active Substance: RANITIDINE
     Indication: ABDOMINAL PAIN
     Dosage: UNK UNK, QD
     Route: 065
     Dates: start: 199001, end: 201801
  2. ZANTAC [Suspect]
     Active Substance: RANITIDINE HYDROCHLORIDE
     Indication: ABDOMINAL PAIN
     Dosage: UNK UNK, QD
     Route: 065
     Dates: start: 199001, end: 201801
  3. ZANTAC [Suspect]
     Active Substance: RANITIDINE HYDROCHLORIDE
     Indication: ABDOMINAL PAIN
     Dosage: UNK UNK, QD
     Route: 065
     Dates: start: 199001, end: 201801
  4. ZANTAC [Suspect]
     Active Substance: RANITIDINE HYDROCHLORIDE
     Indication: ABDOMINAL PAIN
     Dosage: UNK UNK, QD
     Route: 065
     Dates: start: 199001, end: 201801

REACTIONS (1)
  - Gastric cancer [Unknown]
